FAERS Safety Report 6858674-1 (Version None)
Quarter: 2010Q3

REPORT INFORMATION
  Report Type: 
  Country: None (occurrence: None)
  Receive Date: 20100719
  Receipt Date: 20080211
  Transmission Date: 20110219
  Serious: No
  Sender: FDA-Public Use
  Company Number: US-PFIZER INC-2008014435

PATIENT
  Sex: Female

DRUGS (4)
  1. CHANTIX [Suspect]
  2. PROZAC [Suspect]
     Indication: DEPRESSED MOOD
  3. VICODIN [Suspect]
  4. SUDAFED 12 HOUR [Suspect]

REACTIONS (7)
  - DEPRESSED MOOD [None]
  - EYE DISORDER [None]
  - HEADACHE [None]
  - NAUSEA [None]
  - PALPITATIONS [None]
  - TINNITUS [None]
  - WITHDRAWAL SYNDROME [None]
